FAERS Safety Report 4384102-4 (Version None)
Quarter: 2004Q2

REPORT INFORMATION
  Report Type: 
  Country: None (occurrence: None)
  Receive Date: 20040623
  Receipt Date: 20040623
  Transmission Date: 20050107
  Serious: No
  Sender: FDA-Public Use
  Company Number: None

PATIENT
  Age: 18 Year
  Sex: Female

DRUGS (4)
  1. WINRHO [Suspect]
     Dosage: 20, 000 UNITS IVP X1
     Route: 042
  2. ALESSE [Concomitant]
  3. SYNTHROID [Concomitant]
  4. PRENATAL VITAMINS [Concomitant]

REACTIONS (3)
  - CHEST PAIN [None]
  - PYREXIA [None]
  - VOMITING [None]
